FAERS Safety Report 9327972 (Version 1)
Quarter: 2013Q2

REPORT INFORMATION
  Report Type: Spontaneous
  Country: US (occurrence: US)
  Receive Date: 20130604
  Receipt Date: 20130604
  Transmission Date: 20140414
  Serious: No
  Sender: FDA-Public Use
  Company Number: US-SANOFI-AVENTIS-2012SA029615

PATIENT
  Sex: Female
  Weight: 88.45 kg

DRUGS (7)
  1. LANTUS [Suspect]
     Indication: DIABETES MELLITUS
     Dosage: DOSE:20 UNIT(S)
     Route: 058
     Dates: start: 2010
  2. LANTUS [Suspect]
     Indication: DIABETES MELLITUS
     Dosage: DOSE:14 UNIT(S)
     Route: 058
     Dates: end: 20120421
  3. SOLOSTAR [Suspect]
     Indication: DIABETES MELLITUS
     Dates: start: 2010, end: 20120421
  4. METFORMIN [Concomitant]
     Indication: DIABETES MELLITUS
     Route: 065
     Dates: start: 2000
  5. GLIMEPIRIDE [Concomitant]
     Indication: DIABETES MELLITUS
     Route: 048
     Dates: start: 2011
  6. VALSARTAN [Concomitant]
     Indication: HYPERTENSION
     Dosage: TOOK 160MG TO 320MG DAILY.
     Dates: start: 2005
  7. HYDRALAZINE [Concomitant]
     Indication: HYPERTENSION
     Dosage: TOOK 25MG 1 TO 2 DAILY.
     Dates: start: 2005

REACTIONS (10)
  - Heart rate increased [Recovered/Resolved]
  - Chest pain [Not Recovered/Not Resolved]
  - Blood pressure increased [Unknown]
  - Palpitations [Recovered/Resolved]
  - Blood sodium abnormal [Unknown]
  - Cardiac disorder [Recovered/Resolved]
  - Dyspnoea [Recovering/Resolving]
  - Muscle spasms [Unknown]
  - Sleep disorder [Recovered/Resolved]
  - Blood glucose increased [Unknown]
